FAERS Safety Report 12197606 (Version 4)
Quarter: 2017Q3

REPORT INFORMATION
  Report Type: Report from Study
  Country: JP (occurrence: JP)
  Receive Date: 20160322
  Receipt Date: 20170830
  Transmission Date: 20171127
  Serious: Yes (Hospitalization, Other)
  Sender: FDA-Public Use
  Company Number: JP-ACTELION-A-CH2016-131641

PATIENT
  Age: 20 Year
  Sex: Female

DRUGS (34)
  1. EPOPROSTENOL ACT [Suspect]
     Active Substance: EPOPROSTENOL
     Dosage: 24 NG/KG, PER MIN
     Route: 042
     Dates: start: 20141205, end: 20150108
  2. DIOVAN [Concomitant]
     Active Substance: VALSARTAN
  3. LASIX [Concomitant]
     Active Substance: FUROSEMIDE
  4. RINDERON V [Concomitant]
     Active Substance: BETAMETHASONE VALERATE
  5. RESTAMIN [Concomitant]
     Active Substance: DIPHENHYDRAMINE
  6. EPOPROSTENOL ACT [Suspect]
     Active Substance: EPOPROSTENOL
     Dosage: 22 NG/KG, PER MIN
     Route: 042
     Dates: start: 20141003, end: 20141204
  7. EPOPROSTENOL ACT [Suspect]
     Active Substance: EPOPROSTENOL
     Dosage: 42 NG/KG, PER MIN
     Route: 042
     Dates: start: 20150605, end: 20150709
  8. EPOPROSTENOL ACT [Suspect]
     Active Substance: EPOPROSTENOL
     Dosage: 48 NG/KG, PER MIN
     Route: 042
     Dates: start: 20150904, end: 20151001
  9. ALDACTONE A [Concomitant]
     Active Substance: SPIRONOLACTONE
  10. FERRUM [Concomitant]
     Active Substance: FERROUS FUMARATE
  11. REVATIO [Concomitant]
     Active Substance: SILDENAFIL CITRATE
  12. VOLIBRIS [Concomitant]
     Active Substance: AMBRISENTAN
  13. EPOPROSTENOL ACT [Suspect]
     Active Substance: EPOPROSTENOL
     Dosage: 17 NG/KG, PER MIN
     Route: 042
     Dates: start: 20140808, end: 20140903
  14. EPOPROSTENOL ACT [Suspect]
     Active Substance: EPOPROSTENOL
     Dosage: 26 NG/KG, PER MIN
     Route: 042
     Dates: start: 20150109, end: 20150312
  15. EPOPROSTENOL ACT [Suspect]
     Active Substance: EPOPROSTENOL
     Dosage: 39 NG/KG, PER MIN
     Route: 042
     Dates: start: 20150508, end: 20150604
  16. TRACLEER [Suspect]
     Active Substance: BOSENTAN
     Indication: PULMONARY ARTERIAL HYPERTENSION
     Dosage: 125 MG, BID
     Route: 048
     Dates: start: 20050808, end: 20150109
  17. DIGOSIN [Concomitant]
     Active Substance: DIGOXIN
  18. FRANDOL S [Concomitant]
     Active Substance: ISOSORBIDE DINITRATE
  19. OLMETEC [Concomitant]
     Active Substance: OLMESARTAN MEDOXOMIL
  20. CEFAZOLIN NA [Concomitant]
     Active Substance: CEFAZOLIN SODIUM
  21. EPOPROSTENOL ACT [Suspect]
     Active Substance: EPOPROSTENOL
     Dosage: 49 NG/KG, PER MIN
     Route: 042
     Dates: start: 20151002, end: 20151105
  22. ALLEGRA [Concomitant]
     Active Substance: FEXOFENADINE HYDROCHLORIDE
  23. GENTACIN [Concomitant]
     Active Substance: GENTAMICIN SULFATE
  24. EPOPROSTENOL ACT [Suspect]
     Active Substance: EPOPROSTENOL
     Dosage: 19 NG/KG, PER MIN
     Route: 042
     Dates: start: 20140904, end: 20141002
  25. EPOPROSTENOL ACT [Suspect]
     Active Substance: EPOPROSTENOL
     Dosage: 44 NG/KG, PER MIN
     Route: 042
     Dates: start: 20150807, end: 20150903
  26. HEPARINOID [Concomitant]
     Active Substance: CHONDROITIN SULFATE (BOVINE)
  27. OXYGEN. [Concomitant]
     Active Substance: OXYGEN
  28. EPOPROSTENOL ACT [Suspect]
     Active Substance: EPOPROSTENOL
     Indication: PULMONARY ARTERIAL HYPERTENSION
     Dosage: 16.2 NG/KG, PER MIN
     Route: 042
     Dates: start: 20140704, end: 20140807
  29. EPOPROSTENOL ACT [Suspect]
     Active Substance: EPOPROSTENOL
     Dosage: 35 NG/KG, PER MIN
     Route: 042
     Dates: start: 20150313, end: 20150507
  30. EPOPROSTENOL ACT [Suspect]
     Active Substance: EPOPROSTENOL
     Dosage: 43 NG/KG, PER MIN
     Route: 042
     Dates: start: 20150710, end: 20150806
  31. EPOPROSTENOL ACT [Suspect]
     Active Substance: EPOPROSTENOL
     Dosage: 57 NG/KG, PER MIN
     Route: 042
     Dates: start: 20151106, end: 20160107
  32. EPOPROSTENOL ACT [Suspect]
     Active Substance: EPOPROSTENOL
     Dosage: 60 NG/KG, PER MIN
     Route: 042
     Dates: start: 20160108
  33. WARFARIN [Concomitant]
     Active Substance: WARFARIN
  34. MIYA-BM [Concomitant]
     Active Substance: CLOSTRIDIUM BUTYRICUM SPORES STRAIN M-55

REACTIONS (7)
  - Aspartate aminotransferase increased [Recovered/Resolved]
  - Liver disorder [Recovered/Resolved]
  - Device breakage [Recovered/Resolved]
  - Catheter site infection [Recovered/Resolved]
  - Catheter site pain [Recovering/Resolving]
  - Alanine aminotransferase increased [Recovered/Resolved]
  - Device occlusion [Recovered/Resolved]

NARRATIVE: CASE EVENT DATE: 20140831
